FAERS Safety Report 6007709-7 (Version None)
Quarter: 2008Q4

REPORT INFORMATION
  Report Type: 
  Country: None (occurrence: None)
  Receive Date: 20081217
  Receipt Date: 20080519
  Transmission Date: 20090506
  Serious: No
  Sender: FDA-Public Use
  Company Number: US-ASTRAZENECA-2008UW10287

PATIENT
  Age: 63 Year
  Sex: Female
  Weight: 59 kg

DRUGS (4)
  1. CRESTOR [Suspect]
     Indication: BLOOD CHOLESTEROL INCREASED
     Route: 048
     Dates: start: 20071201
  2. PRILOSEC [Concomitant]
  3. LACTOSE THERAPY [Concomitant]
     Indication: LACTOSE INTOLERANCE
  4. NAPROSYN [Concomitant]

REACTIONS (2)
  - ABDOMINAL PAIN [None]
  - FIBROMYALGIA [None]
